FAERS Safety Report 7127380-0 (Version None)
Quarter: 2010Q4

REPORT INFORMATION
  Report Type: 
  Country: None (occurrence: None)
  Receive Date: 20101129
  Receipt Date: 20100518
  Transmission Date: 20110411
  Serious: No
  Sender: FDA-Public Use
  Company Number: US-PFIZER INC-2010062887

PATIENT
  Sex: Male
  Weight: 68.027 kg

DRUGS (3)
  1. VIAGRA [Suspect]
     Dosage: 50 MG, AS NEEDED
  2. VIAGRA [Suspect]
     Dosage: 100 MG, AS NEEDED
     Route: 048
  3. IBUPROFEN [Concomitant]
     Indication: ARTHRITIS
     Dosage: 400 MG, 2X/DAY
     Route: 048
     Dates: start: 19930101

REACTIONS (1)
  - DRUG INEFFECTIVE [None]
